FAERS Safety Report 8180127-1 (Version None)
Quarter: 2012Q1

REPORT INFORMATION
  Report Type: 
  Country: None (occurrence: None)
  Receive Date: 20120302
  Receipt Date: 20120227
  Transmission Date: 20120608
  Serious: Yes (Hospitalization)
  Sender: FDA-Public Use
  Company Number: US-B.I. PHARMACEUTICALS,INC./RIDGEFIELD-2012-BP-03674BP

PATIENT
  Age: 65 Year
  Sex: Male

DRUGS (4)
  1. LISINOPRIL [Concomitant]
     Indication: HYPERTENSION
  2. PRADAXA [Suspect]
     Indication: ATRIAL FIBRILLATION
     Dosage: 300 MG
     Route: 048
     Dates: start: 20111216
  3. UNKNOWN DRUG [Concomitant]
     Indication: BLOOD CHOLESTEROL INCREASED
  4. SOTALOL HCL [Concomitant]
     Indication: ATRIAL FIBRILLATION

REACTIONS (7)
  - PERICARDITIS [None]
  - RENAL FAILURE [None]
  - BLOOD PRESSURE FLUCTUATION [None]
  - REACTION TO AZO-DYES [None]
  - HEART RATE INCREASED [None]
  - CHEST PAIN [None]
  - ATRIAL FIBRILLATION [None]
